FAERS Safety Report 9321521 (Version 1)
Quarter: 2013Q2

REPORT INFORMATION
  Report Type: Spontaneous
  Country: AU (occurrence: None)
  Receive Date: 20130529
  Receipt Date: 20130529
  Transmission Date: 20140414
  Serious: Yes (Death, Other)
  Sender: FDA-Public Use
  Company Number: 2013P1006235

PATIENT
  Age: 32 Year
  Sex: Male

DRUGS (6)
  1. ALPRAZOLAM [Suspect]
  2. 3,4-METHYLENEDIOXYMETHAMPHETAMINE\MDMA [Suspect]
  3. COCAINE [Suspect]
  4. MORPHINE [Suspect]
  5. PSEUDOEPHEDRINE [Suspect]
  6. UNSPECIFIED ^CANNABINOIDS^ [Suspect]

REACTIONS (4)
  - Sudden death [None]
  - Coronary artery disease [None]
  - Toxicity to various agents [None]
  - Visceral congestion [None]
